FAERS Safety Report 22024536 (Version 1)
Quarter: 2023Q1

REPORT INFORMATION
  Report Type: Spontaneous
  Country: US (occurrence: None)
  Receive Date: 20230223
  Receipt Date: 20230223
  Transmission Date: 20230418
  Serious: No
  Sender: FDA-Public Use
  Company Number: US-ROCHE-3039503

PATIENT
  Age: 24 Year
  Sex: Female
  Weight: 169.80 kg

DRUGS (2)
  1. XOLAIR [Suspect]
     Active Substance: OMALIZUMAB
     Indication: Bronchial hyperreactivity
     Route: 058
     Dates: start: 20211129
  2. SINGULAIR [Concomitant]
     Active Substance: MONTELUKAST SODIUM
     Indication: Seasonal allergy
     Dosage: NIGHTLY ;ONGOING: YES
     Route: 048
     Dates: start: 20220119

REACTIONS (4)
  - Product leakage [Unknown]
  - Off label use [Unknown]
  - No adverse event [Unknown]
  - Underdose [Unknown]

NARRATIVE: CASE EVENT DATE: 20220217
